FAERS Safety Report 8390006 (Version 2)
Quarter: 2013Q1

REPORT INFORMATION
  Report Type: Spontaneous
  Country: CA (occurrence: CA)
  Receive Date: 20120203
  Receipt Date: 20130219
  Transmission Date: 20140127
  Serious: Yes (Other)
  Sender: FDA-Public Use
  Company Number: CA-JNJFOC-20120200412

PATIENT
  Age: 42 Year
  Sex: Female
  Weight: 54.43 kg

DRUGS (27)
  1. REMICADE [Suspect]
     Indication: RHEUMATOID ARTHRITIS
     Route: 042
     Dates: start: 200511
  2. REMICADE [Suspect]
     Indication: RHEUMATOID ARTHRITIS
     Route: 042
     Dates: start: 200909
  3. METADOL [Concomitant]
     Route: 065
     Dates: start: 20050726
  4. PREDNISONE [Concomitant]
     Route: 065
     Dates: start: 20101223
  5. METHOTREXATE [Concomitant]
     Dosage: 2.5 7/WEEK
     Route: 065
     Dates: start: 199907
  6. GABAPENTIN [Concomitant]
     Route: 065
     Dates: start: 20091123
  7. DILAUDID [Concomitant]
     Dosage: 16-24 MG HOURLY AS NEEDED
     Route: 065
  8. DILANTIN [Concomitant]
     Route: 065
     Dates: start: 20031012
  9. NAPROSYN E [Concomitant]
     Route: 065
     Dates: start: 20021223
  10. OMEPRAZOLE [Concomitant]
     Route: 065
     Dates: start: 200401
  11. FOSAMAX [Concomitant]
     Route: 065
  12. OMEGA 3-6-9 [Concomitant]
     Route: 065
  13. E VITAMIN [Concomitant]
     Route: 065
  14. VITAMIN C [Concomitant]
     Route: 065
  15. VITAMIN C [Concomitant]
     Route: 065
     Dates: start: 201106
  16. VITAMIN D [Concomitant]
  17. CALCIUM CARBONATE [Concomitant]
     Route: 065
  18. FOLIC ACID [Concomitant]
     Route: 065
  19. FERROUS GLUCONATE [Concomitant]
     Route: 065
  20. DOCUSATE SODIUM [Concomitant]
     Route: 065
  21. SENNOSIDE [Concomitant]
     Route: 065
  22. BACTROBAN [Concomitant]
     Route: 065
     Dates: start: 200502
  23. CYCLOCORT [Concomitant]
     Route: 065
     Dates: start: 200502
  24. AMCINONIDE [Concomitant]
     Route: 065
  25. PREDNISOLONE [Concomitant]
     Indication: EYE DISORDER
     Dosage: BOTH EYES
     Route: 065
     Dates: start: 200401
  26. PREDNISOLONE [Concomitant]
     Indication: EYE DISORDER
     Dosage: RIGHT EYE
     Route: 065
     Dates: start: 200203
  27. COSOPT [Concomitant]
     Indication: INTRAOCULAR PRESSURE INCREASED
     Dosage: 2%-0.5% (AS NEEDED)
     Route: 065

REACTIONS (1)
  - Iritis [Recovering/Resolving]
